FAERS Safety Report 23545942 (Version 1)
Quarter: 2024Q1

REPORT INFORMATION
  Report Type: Spontaneous
  Country: GB (occurrence: GB)
  Receive Date: 20240220
  Receipt Date: 20240220
  Transmission Date: 20240410
  Serious: Yes (Hospitalization)
  Sender: FDA-Public Use
  Company Number: None

PATIENT
  Age: 38 Year
  Sex: Male

DRUGS (15)
  1. WARFARIN [Interacting]
     Active Substance: WARFARIN
     Indication: Product used for unknown indication
     Dosage: 1 MILLIGRAM (AS DIRECTED - SEE WARFARIN NOTE - HELD CURRENTLY)
     Route: 065
     Dates: start: 20230728
  2. WARFARIN [Interacting]
     Active Substance: WARFARIN
     Dosage: 3 MILLIGRAM (AS DIRECTED)
     Route: 065
     Dates: start: 20230728
  3. WARFARIN [Interacting]
     Active Substance: WARFARIN
     Dosage: 5 MILLIGRAM (AS DIRECTED)
     Route: 065
     Dates: start: 20230728
  4. CLARITHROMYCIN [Interacting]
     Active Substance: CLARITHROMYCIN
     Indication: Product used for unknown indication
     Dosage: 500 MILLIGRAM, BID (PATIENT HAD COMPLETED COURSE OF CLARITHROMYCIN PRIOR TO ADMISSION)
     Route: 065
     Dates: start: 20230818
  5. MORPHINE SULFATE [Concomitant]
     Active Substance: MORPHINE SULFATE
     Dosage: 60 MILLIGRAM, BID (12 HOURS)
     Route: 065
     Dates: start: 20230728
  6. LAMOTRIGINE [Concomitant]
     Active Substance: LAMOTRIGINE
     Indication: Pain in extremity
     Dosage: 200 MILLIGRAM, BID (NOT EP - PER WCNN PAIN CLINIC)
     Route: 065
     Dates: start: 20230728
  7. SERTRALINE [Concomitant]
     Active Substance: SERTRALINE HYDROCHLORIDE
     Dosage: 100 MILLIGRAM, QD
     Route: 065
     Dates: start: 20230728
  8. ESOMEPRAZOLE [Concomitant]
     Active Substance: ESOMEPRAZOLE
     Dosage: UNK
     Route: 065
  9. OMEPRAZOLE [Concomitant]
     Active Substance: OMEPRAZOLE
     Dosage: 20 MILLIGRAM, BID
     Route: 065
     Dates: start: 20230728
  10. LEVOTHYROXINE [Concomitant]
     Active Substance: LEVOTHYROXINE\LEVOTHYROXINE SODIUM
     Dosage: 50 MICROGRAM, QD (EVERY MORNING)
     Route: 065
     Dates: start: 20230728
  11. KETOPROFEN [Concomitant]
     Active Substance: KETOPROFEN
     Dosage: UNK
     Route: 065
  12. ACETAMINOPHEN [Concomitant]
     Active Substance: ACETAMINOPHEN
     Dosage: 500 MILLIGRAM, PRN (1-2 QDS)
     Route: 065
     Dates: start: 20230728
  13. NAPROXEN [Concomitant]
     Active Substance: NAPROXEN
     Dosage: UNK
     Route: 065
  14. MINERAL OIL\PARAFFIN [Concomitant]
     Active Substance: MINERAL OIL\PARAFFIN
     Dosage: UNK, PRN
     Route: 065
     Dates: start: 20211022
  15. ACTISORB SILVER [Concomitant]
     Dosage: 1 DOSAGE FORM, PRN
     Route: 065
     Dates: start: 20230728

REACTIONS (3)
  - International normalised ratio increased [Unknown]
  - Haematuria [Recovered/Resolved]
  - Drug interaction [Unknown]
